FAERS Safety Report 4440610-9 (Version None)
Quarter: 2004Q3

REPORT INFORMATION
  Report Type: 
  Country: None (occurrence: None)
  Receive Date: 20040901
  Receipt Date: 20040901
  Transmission Date: 20050211
  Serious: Yes (Hospitalization)
  Sender: FDA-Public Use
  Company Number: None

PATIENT
  Sex: Male
  Weight: 95.2554 kg

DRUGS (4)
  1. NIASPAN [Suspect]
     Indication: BLOOD CHOLESTEROL INCREASED
     Dosage: PO [PRIOR TO ADMISSION]
     Route: 048
  2. ALTACE [Concomitant]
  3. ZETIA [Concomitant]
  4. ECOTRIN [Concomitant]

REACTIONS (3)
  - BURNING SENSATION [None]
  - ERYTHEMA [None]
  - HYPOAESTHESIA [None]
